FAERS Safety Report 17112951 (Version 3)
Quarter: 2020Q1

REPORT INFORMATION
  Report Type: Spontaneous
  Country: US (occurrence: US)
  Receive Date: 20191204
  Receipt Date: 20200109
  Transmission Date: 20200409
  Serious: Yes (Hospitalization)
  Sender: FDA-Public Use
  Company Number: US-PFIZER INC-2019523998

PATIENT
  Age: 44 Year
  Sex: Female
  Weight: 149.66 kg

DRUGS (7)
  1. PREGABALIN. [Suspect]
     Active Substance: PREGABALIN
     Dosage: 100 MG, 1X/DAY,(100 MG. TAKE ONE CAPSULE AT BEDTIME DAILY BY MOUTH)
     Route: 048
     Dates: start: 201908
  2. LYRICA [Suspect]
     Active Substance: PREGABALIN
     Dosage: 100 MG, 1X/DAY (BEDTIME)
     Route: 048
     Dates: start: 2018
  3. PREGABALIN. [Suspect]
     Active Substance: PREGABALIN
     Indication: NEURALGIA
     Dosage: 75 MG, 2X/DAY (MORNING AND AFTERNOON)
     Route: 048
     Dates: start: 201908
  4. LYRICA [Suspect]
     Active Substance: PREGABALIN
     Indication: NEURALGIA
     Dosage: 75 MG, 3X/DAY,
     Route: 048
     Dates: start: 201507
  5. LYRICA [Suspect]
     Active Substance: PREGABALIN
     Dosage: 75 MG, 3X/DAY
     Route: 048
  6. LYRICA [Suspect]
     Active Substance: PREGABALIN
     Dosage: 75 MG, 2X/DAY,(75 MG. TAKE ONE CAPSULE IN THE MORNING AND AFTERNOON BY MOUTH)
     Route: 048
     Dates: start: 2018
  7. LYRICA [Suspect]
     Active Substance: PREGABALIN
     Dosage: 50 MG, 3X/DAY
     Route: 048

REACTIONS (3)
  - Joint swelling [Recovered/Resolved]
  - Pulmonary embolism [Recovered/Resolved]
  - Intentional product use issue [Unknown]

NARRATIVE: CASE EVENT DATE: 201508
